FAERS Safety Report 9808795 (Version 3)
Quarter: 2014Q1

REPORT INFORMATION
  Report Type: Spontaneous
  Country: US (occurrence: US)
  Receive Date: 20140110
  Receipt Date: 20140219
  Transmission Date: 20141002
  Serious: Yes (Other)
  Sender: FDA-Public Use
  Company Number: US-B.I. PHARMACEUTICALS,INC./RIDGEFIELD-2014-BI-00837BP

PATIENT
  Sex: Female

DRUGS (9)
  1. SPIRIVA [Suspect]
     Indication: CHRONIC OBSTRUCTIVE PULMONARY DISEASE
     Dosage: 18 MCG
     Route: 055
  2. COMBIVENT [Suspect]
     Indication: CHRONIC OBSTRUCTIVE PULMONARY DISEASE
     Dosage: DOSE PER APPLICATION: 18 MCG/ 103 MCG,DAILY DOSE: 144 MCG/824 MCG QID
     Route: 055
  3. ADVAIR DISKUS [Concomitant]
     Route: 055
  4. ATENOLOL [Concomitant]
     Route: 048
  5. HYDROCHLOROTHIAZIDE [Concomitant]
     Route: 048
  6. LOVASTATIN [Concomitant]
     Route: 048
  7. PREMARIN [Concomitant]
     Route: 048
  8. SINGULAIR [Concomitant]
     Route: 048
  9. THEOPHYLLINE [Concomitant]
     Route: 048

REACTIONS (2)
  - Lung neoplasm malignant [Not Recovered/Not Resolved]
  - Product quality issue [Unknown]
